FAERS Safety Report 8849596 (Version 2)
Quarter: 2012Q4

REPORT INFORMATION
  Report Type: Report from Study
  Country: CN (occurrence: CN)
  Receive Date: 20121019
  Receipt Date: 20121101
  Transmission Date: 20130627
  Serious: Yes (Hospitalization)
  Sender: FDA-Public Use
  Company Number: CN-JNJFOC-20121008982

PATIENT
  Age: 59 Year
  Sex: Female
  Weight: 53 kg

DRUGS (9)
  1. INFLIXIMAB, RECOMBINANT [Suspect]
     Indication: COLITIS ULCERATIVE
     Dosage: week 0
     Route: 042
     Dates: start: 20120714
  2. INFLIXIMAB, RECOMBINANT [Suspect]
     Indication: COLITIS ULCERATIVE
     Dosage: 4th dose
     Route: 042
     Dates: start: 20121022
  3. INFLIXIMAB, RECOMBINANT [Suspect]
     Indication: COLITIS ULCERATIVE
     Dosage: week 6
     Route: 042
     Dates: start: 20120827
  4. INFLIXIMAB, RECOMBINANT [Suspect]
     Indication: COLITIS ULCERATIVE
     Dosage: week 2
     Route: 042
     Dates: start: 20120728
  5. AZATHIOPRINE [Concomitant]
     Indication: COLITIS ULCERATIVE
     Dates: start: 20120515
  6. CEFOTAXIME SODIUM [Concomitant]
     Indication: COLITIS ULCERATIVE
     Dates: start: 20120907
  7. CEFOTAXIME SODIUM [Concomitant]
     Indication: COLITIS ULCERATIVE
     Dates: start: 20120922
  8. CEFOTAXIME SODIUM [Concomitant]
     Indication: COLITIS ULCERATIVE
     Dates: start: 20120918
  9. SULPHASALAZINE [Concomitant]
     Indication: COLITIS ULCERATIVE
     Dates: start: 20120515

REACTIONS (1)
  - Colitis ulcerative [Not Recovered/Not Resolved]
